FAERS Safety Report 17484263 (Version 1)
Quarter: 2020Q1

REPORT INFORMATION
  Report Type: Spontaneous
  Country: US (occurrence: US)
  Receive Date: 20200302
  Receipt Date: 20200302
  Transmission Date: 20200409
  Serious: No
  Sender: FDA-Public Use
  Company Number: US-AMGEN-USASP2020032974

PATIENT
  Sex: Female

DRUGS (1)
  1. REPATHA [Suspect]
     Active Substance: EVOLOCUMAB
     Indication: TEMPORAL ARTERITIS
     Dosage: 140 MILLIGRAM PER MILLILITRE
     Route: 065

REACTIONS (2)
  - Product dose omission [Unknown]
  - Off label use [Unknown]
